FAERS Safety Report 25929885 (Version 2)
Quarter: 2025Q4

REPORT INFORMATION
  Report Type: Spontaneous
  Country: KW (occurrence: KW)
  Receive Date: 20251016
  Receipt Date: 20251120
  Transmission Date: 20260118
  Serious: Yes (Other)
  Sender: PFIZER
  Company Number: KW-PFIZER INC-PV202500120695

PATIENT
  Age: 59 Year
  Sex: Female

DRUGS (4)
  1. ZIRABEV [Suspect]
     Active Substance: BEVACIZUMAB-BVZR
     Indication: Colon cancer metastatic
     Dosage: 400 MG, EVERY 2 WEEKS
     Route: 042
     Dates: start: 202505
  2. ASPIRIN [Concomitant]
     Active Substance: ASPIRIN
     Dosage: UNK
  3. BISOPROLOL FUMARATE [Concomitant]
     Active Substance: BISOPROLOL FUMARATE
     Dosage: UNK
  4. JANUMET [Concomitant]
     Active Substance: METFORMIN HYDROCHLORIDE\SITAGLIPTIN PHOSPHATE
     Dosage: UNK

REACTIONS (3)
  - Colon cancer metastatic [Unknown]
  - Malignant neoplasm progression [Unknown]
  - Malignant gastrointestinal obstruction [Unknown]

NARRATIVE: CASE EVENT DATE: 20250101
